FAERS Safety Report 14427601 (Version 1)
Quarter: 2018Q1

REPORT INFORMATION
  Report Type: Report from Study
  Country: US (occurrence: US)
  Receive Date: 20180123
  Receipt Date: 20180123
  Transmission Date: 20180509
  Serious: Yes (Hospitalization)
  Sender: FDA-Public Use
  Company Number: US-EXELIXIS-CABO-18012034

PATIENT
  Sex: Male
  Weight: 86.17 kg

DRUGS (25)
  1. NYSTATIN. [Concomitant]
     Active Substance: NYSTATIN
  2. LIDOCAINE W/PRILOCAINE [Concomitant]
     Active Substance: LIDOCAINE\PRILOCAINE
  3. SENNA [Concomitant]
     Active Substance: SENNA LEAF\SENNOSIDES\SENNOSIDES A AND B
  4. AFINITOR [Concomitant]
     Active Substance: EVEROLIMUS
  5. AZITHROMYCIN ANHYDROUS. [Concomitant]
     Active Substance: AZITHROMYCIN ANHYDROUS
  6. LENVIMA [Concomitant]
     Active Substance: LENVATINIB
  7. VITAMIN D [Concomitant]
     Active Substance: CHOLECALCIFEROL
  8. METOCLOPRAMIDE HCL [Concomitant]
     Active Substance: METOCLOPRAMIDE HYDROCHLORIDE
  9. MORPHINE SULFATE. [Concomitant]
     Active Substance: MORPHINE SULFATE
  10. MOVANTIK [Concomitant]
     Active Substance: NALOXEGOL OXALATE
  11. CABOMETYX [Suspect]
     Active Substance: CABOZANTINIB S-MALATE
     Indication: RENAL CANCER
     Dosage: 60 MG, QD
     Route: 048
  12. MIRTAZAPINE. [Concomitant]
     Active Substance: MIRTAZAPINE
  13. FENTANYL. [Concomitant]
     Active Substance: FENTANYL
  14. MIRALAX [Concomitant]
     Active Substance: POLYETHYLENE GLYCOL 3350
  15. HYDROMORPHONE HCL [Concomitant]
     Active Substance: HYDROMORPHONE HYDROCHLORIDE
  16. METHYLPHENIDATE. [Concomitant]
     Active Substance: METHYLPHENIDATE
  17. LEVOTHYROXINE. [Concomitant]
     Active Substance: LEVOTHYROXINE
  18. SYNDROS [Concomitant]
     Active Substance: DRONABINOL
  19. TYLENOL [Concomitant]
     Active Substance: ACETAMINOPHEN
  20. OXYBUTYNIN CHLORIDE. [Concomitant]
     Active Substance: OXYBUTYNIN CHLORIDE
  21. ONDANSETRON HCL [Concomitant]
     Active Substance: ONDANSETRON HYDROCHLORIDE
  22. PROCHLORPERAZINE MALEATE. [Concomitant]
     Active Substance: PROCHLORPERAZINE MALEATE
  23. LIDOCAINE. [Concomitant]
     Active Substance: LIDOCAINE
  24. PROBIOTIC ACIDOPHILUS [Concomitant]
     Active Substance: LACTOBACILLUS ACIDOPHILUS
  25. ELIQUIS [Concomitant]
     Active Substance: APIXABAN

REACTIONS (2)
  - Colitis [Unknown]
  - Sepsis [Unknown]
